FAERS Safety Report 17440507 (Version 1)
Quarter: 2020Q1

REPORT INFORMATION
  Report Type: Spontaneous
  Country: DE (occurrence: DE)
  Receive Date: 20200220
  Receipt Date: 20200220
  Transmission Date: 20200409
  Serious: Yes (Other)
  Sender: FDA-Public Use
  Company Number: DE-ASTELLAS-2020US005657

PATIENT
  Age: 57 Year
  Sex: Male
  Weight: 180 kg

DRUGS (1)
  1. XTANDI [Suspect]
     Active Substance: ENZALUTAMIDE
     Indication: PRODUCT USED FOR UNKNOWN INDICATION
     Dosage: 160 MG, ONCE DAILY (EVERY MORNING)
     Route: 065

REACTIONS (2)
  - Weight increased [Unknown]
  - Prostatic specific antigen increased [Unknown]
